FAERS Safety Report 6929856-5 (Version None)
Quarter: 2010Q3

REPORT INFORMATION
  Report Type: 
  Country: None (occurrence: None)
  Receive Date: 20100817
  Receipt Date: 20100817
  Transmission Date: 20110219
  Serious: Yes (Hospitalization, Other)
  Sender: FDA-Public Use
  Company Number: None

PATIENT
  Age: 50 Year
  Sex: Male

DRUGS (6)
  1. SIMVASTATIN AND NIASPAN [Suspect]
     Indication: HYPERCHOLESTEROLAEMIA
     Dosage: 80 MG AND 750 TID 5+ YEARS
     Route: 048
     Dates: start: 20041201, end: 20100714
  2. LOTREL [Concomitant]
  3. HYDROCHLOROTHIAZIDE [Concomitant]
  4. ALPRAZOLAM [Concomitant]
  5. ATENOLOL [Concomitant]
  6. SEROQUEL [Concomitant]

REACTIONS (4)
  - DIALYSIS [None]
  - HEPATIC ENZYME INCREASED [None]
  - RENAL FAILURE [None]
  - RHABDOMYOLYSIS [None]
